FAERS Safety Report 6679339-5 (Version None)
Quarter: 2010Q2

REPORT INFORMATION
  Report Type: 
  Country: None (occurrence: None)
  Receive Date: 20100413
  Receipt Date: 20100401
  Transmission Date: 20101027
  Serious: Yes (Hospitalization, Other)
  Sender: FDA-Public Use
  Company Number: US-JNJFOC-20091205621

PATIENT
  Sex: Female
  Weight: 62.14 kg

DRUGS (8)
  1. NUCYNTA [Suspect]
     Indication: BACK PAIN
     Dosage: 15 X 50MG TABLETS
     Route: 048
  2. LIDODERM [Concomitant]
     Route: 065
  3. NORVASC [Concomitant]
     Route: 065
  4. ZYPREXA [Concomitant]
     Route: 065
  5. ATENOLOL [Concomitant]
     Route: 065
  6. HEPARIN [Concomitant]
     Route: 065
  7. TYLENOL-500 [Concomitant]
     Route: 065
  8. NEXIUM [Concomitant]
     Route: 065

REACTIONS (3)
  - LOSS OF CONSCIOUSNESS [None]
  - OVERDOSE [None]
  - SUICIDE ATTEMPT [None]
